FAERS Safety Report 6361876-4 (Version None)
Quarter: 2009Q3

REPORT INFORMATION
  Report Type: 
  Country: None (occurrence: None)
  Receive Date: 20090918
  Receipt Date: 20090915
  Transmission Date: 20100115
  Serious: Yes (Life-Threatening)
  Sender: FDA-Public Use
  Company Number: JP-ROCHE-656604

PATIENT
  Sex: Male

DRUGS (8)
  1. CAPECITABINE [Suspect]
     Route: 048
     Dates: start: 20090129, end: 20090309
  2. OXALIPLATIN [Suspect]
     Route: 041
     Dates: start: 20090226, end: 20090226
  3. GLUTATHIONE [Concomitant]
  4. OMEPRAZOLE [Concomitant]
  5. VITAMINE D [Concomitant]
  6. VYTORIN [Concomitant]
  7. AMLODIPINE [Concomitant]
  8. ASPIRIN [Concomitant]

REACTIONS (1)
  - ACUTE MYELOID LEUKAEMIA [None]
